FAERS Safety Report 16497710 (Version 1)
Quarter: 2019Q2

REPORT INFORMATION
  Report Type: Report from Study
  Country: US (occurrence: US)
  Receive Date: 20190628
  Receipt Date: 20190628
  Transmission Date: 20190711
  Serious: Yes (Other)
  Sender: FDA-Public Use
  Company Number: US-AMGEN-USASL2019038327

PATIENT
  Age: 54 Year
  Sex: Male

DRUGS (1)
  1. REPATHA [Suspect]
     Active Substance: EVOLOCUMAB
     Indication: BLOOD CHOLESTEROL INCREASED
     Dosage: 140 MILLIGRAM, Q2WK
     Route: 065

REACTIONS (8)
  - Chest pain [Unknown]
  - Vomiting [Unknown]
  - Pain in extremity [Recovering/Resolving]
  - Papule [Unknown]
  - Presyncope [Unknown]
  - Swelling face [Unknown]
  - Dizziness [Unknown]
  - Dry throat [Unknown]
